FAERS Safety Report 4836300-0 (Version None)
Quarter: 2005Q4

REPORT INFORMATION
  Report Type: 
  Country: None (occurrence: None)
  Receive Date: 20051123
  Receipt Date: 20051111
  Transmission Date: 20060501
  Serious: Yes (Death)
  Sender: FDA-Public Use
  Company Number: US-JNJFOC-20051104932

PATIENT

DRUGS (7)
  1. ORTHOCLONE OKT3 [Suspect]
     Indication: HEART TRANSPLANT
     Dosage: DOSE=0.1-0.2 MG/KG/DAY WITH A MAXIMUM DOSE OF 5 MG/DAY FOR 7 DOSES
     Route: 042
  2. ACETAMINOPHEN [Concomitant]
  3. HYDROCORTISONE [Concomitant]
  4. DIPHENYHYDRAMINE [Concomitant]
  5. CYCLOSPORINE [Concomitant]
  6. MYCOPHENOLATE MOFETIL [Concomitant]
  7. PREDNISONE [Concomitant]

REACTIONS (1)
  - INFECTION [None]
